FAERS Safety Report 9190179 (Version 1)
Quarter: 2013Q1

REPORT INFORMATION
  Report Type: Spontaneous
  Country: US (occurrence: None)
  Receive Date: 20130325
  Receipt Date: 20130325
  Transmission Date: 20140127
  Serious: Yes (Other)
  Sender: FDA-Public Use
  Company Number: None

PATIENT
  Age: 69 Year
  Sex: Female
  Weight: 73.48 kg

DRUGS (1)
  1. ALENDRONATE 70MG NORTHSTAR [Suspect]
     Indication: BONE DISORDER
     Dosage: 70MG  1 WEEK?LITTLE OVER A YEAR

REACTIONS (4)
  - Alopecia [None]
  - Arthropathy [None]
  - Gastric disorder [None]
  - Musculoskeletal disorder [None]
